FAERS Safety Report 17236321 (Version 3)
Quarter: 2020Q2

REPORT INFORMATION
  Report Type: Spontaneous
  Country: US (occurrence: US)
  Receive Date: 20200106
  Receipt Date: 20200612
  Transmission Date: 20200713
  Serious: Yes (Hospitalization, Other)
  Sender: FDA-Public Use
  Company Number: US-PFIZER INC-2018526498

PATIENT
  Age: 84 Year
  Sex: Male
  Weight: 102.06 kg

DRUGS (2)
  1. ZYVOX [Suspect]
     Active Substance: LINEZOLID
     Indication: STAPHYLOCOCCAL INFECTION
     Dosage: 600 MG, AS NEEDED (LIKE 1-2 WEEKS OR HOWEVER LONG)
  2. ZYVOX [Suspect]
     Active Substance: LINEZOLID
     Indication: DIABETIC FOOT
     Dosage: 600 MG, 2X/DAY
     Route: 048

REACTIONS (7)
  - Intentional product use issue [Unknown]
  - Blood count abnormal [Unknown]
  - Somnolence [Recovering/Resolving]
  - Urinary tract infection [Unknown]
  - Clavicle fracture [Recovering/Resolving]
  - Asthenia [Unknown]
  - Fall [Recovering/Resolving]

NARRATIVE: CASE EVENT DATE: 20191125
